FAERS Safety Report 4380393-4 (Version None)
Quarter: 2004Q2

REPORT INFORMATION
  Report Type: 
  Country: None (occurrence: None)
  Receive Date: 20040618
  Receipt Date: 20031223
  Transmission Date: 20050107
  Serious: Yes (Hospitalization)
  Sender: FDA-Public Use
  Company Number: US-BRISTOL-MYERS SQUIBB COMPANY-12463832

PATIENT
  Age: 43 Year
  Sex: Male
  Weight: 73 kg

DRUGS (18)
  1. REYATAZ [Suspect]
     Indication: HIV INFECTION
     Dosage: TWO 200 MG CAPSULES
     Route: 048
     Dates: start: 20030801, end: 20040601
  2. CAPTOPRIL [Suspect]
  3. PLAVIX [Concomitant]
  4. PREVACID [Concomitant]
  5. AMBIEN [Concomitant]
  6. ZERIT [Concomitant]
  7. LOPID [Concomitant]
  8. BACTRIM [Concomitant]
  9. OXYCONTIN [Concomitant]
  10. ZITHROMAX [Concomitant]
  11. ECOTRIN [Concomitant]
  12. FOLIC ACID [Concomitant]
  13. ERYTHROMYCIN [Concomitant]
  14. ABACAVIR [Concomitant]
  15. VALIUM [Concomitant]
  16. FLOVENT [Concomitant]
     Route: 055
  17. ALBUTEROL [Concomitant]
     Route: 055
  18. EPIPEN [Concomitant]

REACTIONS (8)
  - CHEST PAIN [None]
  - CORONARY ARTERY THROMBOSIS [None]
  - DRUG HYPERSENSITIVITY [None]
  - DYSPNOEA [None]
  - HEART RATE INCREASED [None]
  - MARKEDLY REDUCED DIETARY INTAKE [None]
  - MYOCARDIAL INFARCTION [None]
  - WEIGHT DECREASED [None]
